FAERS Safety Report 18962961 (Version 1)
Quarter: 2021Q1

REPORT INFORMATION
  Report Type: Spontaneous
  Country: US (occurrence: US)
  Receive Date: 20210303
  Receipt Date: 20210303
  Transmission Date: 20210420
  Serious: No
  Sender: FDA-Public Use
  Company Number: US-SLATE RUN PHARMACEUTICALS-21US000407

PATIENT

DRUGS (3)
  1. VACCINES [Suspect]
     Active Substance: UNSPECIFIED INGREDIENT
     Dosage: UNK UNK, SINGLE
     Route: 065
     Dates: start: 20210128, end: 20210128
  2. BUPROPION HYDROCHLORIDE EXTENDED RELEASE USP (XL) [Suspect]
     Active Substance: BUPROPION HYDROCHLORIDE
     Indication: DEPRESSION
     Dosage: 300 MILLIGRAM, QD
     Route: 048
     Dates: start: 20210127
  3. VACCINES [Suspect]
     Active Substance: UNSPECIFIED INGREDIENT
     Indication: COVID-19 PROPHYLAXIS
     Dosage: UNK UNK, SINGLE
     Route: 065
     Dates: start: 20210216, end: 20210216

REACTIONS (4)
  - Off label use [Not Recovered/Not Resolved]
  - Feeling abnormal [Recovering/Resolving]
  - Malaise [Not Recovered/Not Resolved]
  - Dysgeusia [Recovered/Resolved]

NARRATIVE: CASE EVENT DATE: 20210127
